FAERS Safety Report 9512240 (Version 3)
Quarter: 2013Q4

REPORT INFORMATION
  Report Type: Spontaneous
  Country: US (occurrence: US)
  Receive Date: 20130910
  Receipt Date: 20131030
  Transmission Date: 20140711
  Serious: Yes (Other)
  Sender: FDA-Public Use
  Company Number: PHEH2013US018660

PATIENT
  Sex: Female

DRUGS (7)
  1. LISINOPRIL + HIDROCLOROTIAZIDA [Concomitant]
     Dosage: 20/12.5
  2. PRAVASTATIN [Concomitant]
     Dosage: 20 MG, UNK
  3. CLONAZEPAM [Concomitant]
     Dosage: 5 MG
  4. AFINITOR [Suspect]
     Indication: NEOPLASM MALIGNANT
     Dosage: 5 MG
  5. AFINITOR [Suspect]
     Dosage: 10 MG
  6. AFINITOR [Suspect]
     Dosage: 2.5 MG, BID
  7. EXEMESTANE [Concomitant]
     Dosage: 25 MG

REACTIONS (3)
  - Feeling abnormal [Unknown]
  - Depression [Unknown]
  - Malaise [Unknown]
